FAERS Safety Report 4397634-X (Version None)
Quarter: 2004Q3

REPORT INFORMATION
  Report Type: 
  Country: None (occurrence: None)
  Receive Date: 20040712
  Receipt Date: 20040621
  Transmission Date: 20050211
  Serious: Yes (Hospitalization, Disabling)
  Sender: FDA-Public Use
  Company Number: DE_000802838

PATIENT
  Age: 48 Year
  Sex: Male
  Weight: 80 kg

DRUGS (3)
  1. ZYPREXA [Suspect]
     Indication: SCHIZOAFFECTIVE DISORDER
     Dosage: 20 M DAY
     Dates: start: 19970123, end: 20000707
  2. QUILONUM - SLOW RELEASE (LITHIUM CARBONATE) [Concomitant]
  3. ANAFRANIL [Concomitant]

REACTIONS (16)
  - BLOOD ALKALINE PHOSPHATASE INCREASED [None]
  - BLOOD PRESSURE INCREASED [None]
  - COGNITIVE DISORDER [None]
  - DIABETIC HYPEROSMOLAR COMA [None]
  - DISTURBANCE IN ATTENTION [None]
  - GAMMA-GLUTAMYLTRANSFERASE INCREASED [None]
  - HALLUCINATIONS, MIXED [None]
  - LETHARGY [None]
  - LIVER DISORDER [None]
  - MENTAL DISORDER DUE TO A GENERAL MEDICAL CONDITION [None]
  - PARAESTHESIA [None]
  - PARANOIA [None]
  - PNEUMONIA [None]
  - RENAL FAILURE ACUTE [None]
  - RHABDOMYOLYSIS [None]
  - VISION BLURRED [None]
